FAERS Safety Report 23379024 (Version 1)
Quarter: 2024Q1

REPORT INFORMATION
  Report Type: Spontaneous
  Country: US (occurrence: US)
  Receive Date: 20240108
  Receipt Date: 20240108
  Transmission Date: 20240409
  Serious: Yes (Hospitalization)
  Sender: FDA-Public Use
  Company Number: US-GLAND PHARMA LIMITED-2023US004685

PATIENT
  Age: 58 Year
  Sex: Female

DRUGS (6)
  1. IRINOTECAN HYDROCHLORIDE [Suspect]
     Active Substance: IRINOTECAN HYDROCHLORIDE
     Indication: Adenocarcinoma pancreas
     Dosage: 150 MG/M2 (TOTAL 242 MG)
     Route: 065
     Dates: start: 202301
  2. IRINOTECAN HYDROCHLORIDE [Suspect]
     Active Substance: IRINOTECAN HYDROCHLORIDE
     Dosage: HALF RATE OF 87.5 ML/HR OVER 180 MINUTES
     Route: 065
  3. OXALIPLATIN [Concomitant]
     Active Substance: OXALIPLATIN
     Indication: Adenocarcinoma pancreas
     Dosage: 85 MG/M2 (TOTAL 136.85 MG)
     Route: 065
     Dates: start: 202301
  4. LEUCOVORIN [Concomitant]
     Active Substance: LEUCOVORIN\LEUCOVORIN CALCIUM
     Indication: Adenocarcinoma pancreas
     Dosage: 400 MG/M2 (TOTAL 644 MG)
     Route: 065
     Dates: start: 202301
  5. ATROPINE [Concomitant]
     Active Substance: ATROPINE\ATROPINE SULFATE
     Indication: Adenocarcinoma pancreas
     Dosage: 0.4 MG
     Route: 065
     Dates: start: 202301
  6. FAMOTIDINE [Concomitant]
     Active Substance: FAMOTIDINE
     Indication: Adenocarcinoma pancreas
     Dosage: 20 MG
     Route: 065
     Dates: start: 202301

REACTIONS (9)
  - Arrhythmia [Recovered/Resolved]
  - Headache [Recovered/Resolved]
  - Dyspnoea [Recovered/Resolved]
  - Dizziness [Recovered/Resolved]
  - Tongue disorder [Recovered/Resolved]
  - Dysarthria [Recovered/Resolved]
  - Product use in unapproved indication [Recovered/Resolved]
  - Tongue disorder [Unknown]
  - Dysarthria [Unknown]
